FAERS Safety Report 5352847-5 (Version None)
Quarter: 2007Q2

REPORT INFORMATION
  Report Type: 
  Country: None (occurrence: None)
  Receive Date: 20070611
  Receipt Date: 20070601
  Transmission Date: 20071010
  Serious: Yes (Death, Other)
  Sender: FDA-Public Use
  Company Number: CZ-ELI_LILLY_AND_COMPANY-CZ200706000149

PATIENT
  Age: 66 Year
  Sex: Male

DRUGS (8)
  1. ZYPREXA [Suspect]
     Indication: ABNORMAL BEHAVIOUR
     Dosage: 10 MG, DAILY (1/D)
     Route: 048
     Dates: start: 20070215
  2. ADIURETIN SD [Concomitant]
  3. PROSTAMOL [Concomitant]
  4. EPILAN-D [Concomitant]
  5. DIACORDIN [Concomitant]
  6. OMEPRAZOLE [Concomitant]
  7. HYPNOGEN [Concomitant]
  8. INSULIN [Concomitant]
     Indication: DIABETES MELLITUS

REACTIONS (5)
  - ABDOMINAL PAIN [None]
  - FALL [None]
  - GENERAL PHYSICAL HEALTH DETERIORATION [None]
  - HYPOGLYCAEMIA [None]
  - PYREXIA [None]
